FAERS Safety Report 5583568-1 (Version None)
Quarter: 2008Q1

REPORT INFORMATION
  Report Type: 
  Country: None (occurrence: None)
  Receive Date: 20080107
  Receipt Date: 20071227
  Transmission Date: 20080703
  Serious: Yes (Life-Threatening, Hospitalization)
  Sender: FDA-Public Use
  Company Number: DE-GENENTECH-246620

PATIENT
  Sex: Female
  Weight: 43 kg

DRUGS (3)
  1. BEVACIZUMAB [Suspect]
     Indication: NON-SMALL CELL LUNG CANCER
     Dosage: 645 MG, Q3W
     Route: 042
     Dates: start: 20070809
  2. CARBOPLATIN [Concomitant]
     Indication: NON-SMALL CELL LUNG CANCER
     Dates: start: 20070809
  3. GEMCITABINE [Concomitant]
     Indication: NON-SMALL CELL LUNG CANCER

REACTIONS (1)
  - PNEUMOTHORAX [None]
